FAERS Safety Report 14691828 (Version 1)
Quarter: 2018Q1

REPORT INFORMATION
  Report Type: Other
  Country: GB (occurrence: GB)
  Receive Date: 20180329
  Receipt Date: 20180329
  Transmission Date: 20180509
  Serious: No
  Sender: FDA-Public Use
  Company Number: GB-LUPIN PHARMACEUTICALS INC.-2018-00542

PATIENT
  Age: 26 Year
  Sex: Female
  Weight: 65 kg

DRUGS (8)
  1. COCODAMOL [Concomitant]
     Active Substance: ACETAMINOPHEN\CODEINE PHOSPHATE
     Indication: ILL-DEFINED DISORDER
     Dosage: UNK, 2 TABLETS TO BE TAKEN AT ONSET OF MIGRAINE, USE...
     Route: 065
     Dates: start: 20171113, end: 20171221
  2. ETONOGESTREL [Concomitant]
     Active Substance: ETONOGESTREL
     Indication: ILL-DEFINED DISORDER
     Dosage: UNK, USE AS DIRECTED
     Route: 065
     Dates: start: 20180111
  3. DOMPERIDONE [Concomitant]
     Active Substance: DOMPERIDONE
     Indication: ILL-DEFINED DISORDER
     Dosage: UNK, TAKE ONE AT ONSET OF MIGRAINE
     Route: 065
     Dates: start: 20180111
  4. FLUCLOXACILLIN [Concomitant]
     Active Substance: FLUCLOXACILLIN
     Indication: ILL-DEFINED DISORDER
     Dosage: UNK, TAKE ONE 4 TIMES/DAY
     Route: 065
     Dates: start: 20171201, end: 20171208
  5. GABAPENTIN. [Concomitant]
     Active Substance: GABAPENTIN
     Indication: ILL-DEFINED DISORDER
     Dosage: UNK, INCREASE UP TO 2 TABLETS THREE TIMES PER DAY OV...
     Dates: start: 20170630
  6. ACETYLSALICYLIC ACID [Concomitant]
     Active Substance: ASPIRIN
     Indication: ILL-DEFINED DISORDER
     Dosage: UNK, 2-3 TABLETS AT ONSET OF MIGRAINE
     Route: 065
     Dates: start: 20180111
  7. SUMATRIPTAN. [Concomitant]
     Active Substance: SUMATRIPTAN
     Indication: ILL-DEFINED DISORDER
     Dosage: UNK, TAKE ONE AT ONSET SEVERE HEADAHCE/ MIGRAINE
     Route: 065
     Dates: start: 20170630, end: 20171016
  8. SERTRALINE [Suspect]
     Active Substance: SERTRALINE HYDROCHLORIDE
     Indication: PRODUCT USED FOR UNKNOWN INDICATION
     Dosage: UNK
     Route: 065
     Dates: start: 20171016, end: 20171211

REACTIONS (1)
  - Nausea [Recovered/Resolved]

NARRATIVE: CASE EVENT DATE: 20171016
